FAERS Safety Report 17005207 (Version 1)
Quarter: 2019Q4

REPORT INFORMATION
  Report Type: Spontaneous
  Country: GB (occurrence: GB)
  Receive Date: 20191107
  Receipt Date: 20191107
  Transmission Date: 20200122
  Serious: Yes (Other)
  Sender: FDA-Public Use
  Company Number: GB-MYLANLABS-2019M1105763

PATIENT
  Age: 23 Year
  Sex: Female
  Weight: 88.9 kg

DRUGS (1)
  1. LABETALOL [Suspect]
     Active Substance: LABETALOL\LABETALOL HYDROCHLORIDE
     Indication: HYPERTENSION
     Dosage: 200 MILLIGRAM
     Route: 048
     Dates: start: 20190906

REACTIONS (3)
  - Hallucination, visual [Not Recovered/Not Resolved]
  - Maternal exposure during pregnancy [Unknown]
  - Insomnia [Unknown]

NARRATIVE: CASE EVENT DATE: 20191007
